FAERS Safety Report 9613066 (Version 2)
Quarter: 2013Q4

REPORT INFORMATION
  Report Type: Spontaneous
  Country: GB (occurrence: GB)
  Receive Date: 20131010
  Receipt Date: 20131010
  Transmission Date: 20140711
  Serious: Yes (Death)
  Sender: FDA-Public Use
  Company Number: GB-WATSON-2013-01662

PATIENT
  Age: 41 Year
  Sex: Male

DRUGS (3)
  1. FLUOXETINE (UNKNOWN) [Suspect]
     Indication: DEPRESSION
     Dosage: 20 MG, UNKNOWN
     Route: 048
     Dates: start: 20120224, end: 20120301
  2. ZOPICLONE [Concomitant]
     Indication: SLEEP DISORDER
     Dosage: 3.75 MG, UNKNOWN
     Route: 065
  3. ZOPICLONE [Concomitant]

REACTIONS (1)
  - Completed suicide [Fatal]
